FAERS Safety Report 5265811-1 (Version None)
Quarter: 2007Q1

REPORT INFORMATION
  Report Type: 
  Country: None (occurrence: None)
  Receive Date: 20061213
  Receipt Date: 20041217
  Transmission Date: 20070707
  Serious: Yes (Other)
  Sender: FDA-Public Use
  Company Number: 2004UW23770

PATIENT
  Age: 82 Year
  Sex: Female
  Weight: 48.08 kg

DRUGS (2)
  1. IRESSA [Suspect]
     Indication: LUNG NEOPLASM MALIGNANT
     Dosage: 250 MG PO
     Route: 048
  2. VITAMINS [Concomitant]

REACTIONS (2)
  - DRY SKIN [None]
  - VULVOVAGINAL DRYNESS [None]
